FAERS Safety Report 25110040 (Version 1)
Quarter: 2025Q1

REPORT INFORMATION
  Report Type: Spontaneous
  Country: US (occurrence: US)
  Receive Date: 20250324
  Receipt Date: 20250324
  Transmission Date: 20250408
  Serious: Yes (Other)
  Sender: BOEHRINGER INGELHEIM
  Company Number: US-Komodo Health-a23aa000006Q6ntAAC

PATIENT
  Age: 78 Year
  Sex: Male

DRUGS (2)
  1. JARDIANCE [Suspect]
     Active Substance: EMPAGLIFLOZIN
     Indication: Type 2 diabetes mellitus
  2. Prosvent [Concomitant]
     Indication: Prostatomegaly

REACTIONS (6)
  - Lower limb fracture [Unknown]
  - Concussion [Recovered/Resolved]
  - Arthralgia [Unknown]
  - Gait disturbance [Not Recovered/Not Resolved]
  - Joint dislocation [Not Recovered/Not Resolved]
  - Arthritis [Not Recovered/Not Resolved]

NARRATIVE: CASE EVENT DATE: 20230101
